FAERS Safety Report 14425426 (Version 1)
Quarter: 2018Q1

REPORT INFORMATION
  Report Type: Spontaneous
  Country: US (occurrence: US)
  Receive Date: 20180123
  Receipt Date: 20180123
  Transmission Date: 20180509
  Serious: No
  Sender: FDA-Public Use
  Company Number: US-PERRIGO-17US025276

PATIENT
  Age: 7 Year
  Sex: Male
  Weight: 20.86 kg

DRUGS (2)
  1. IBUPROFEN. [Suspect]
     Active Substance: IBUPROFEN
     Dosage: UNKNOWN, SINGLE
     Dates: start: 20170718, end: 20170718
  2. IBUPROFEN. [Suspect]
     Active Substance: IBUPROFEN
     Indication: EAR PAIN
     Dosage: 150 MG, QD
     Route: 048
     Dates: start: 20170714, end: 20170717

REACTIONS (5)
  - Oedema peripheral [Not Recovered/Not Resolved]
  - Hypersensitivity [Not Recovered/Not Resolved]
  - Swelling face [Not Recovered/Not Resolved]
  - Expired product administered [Recovered/Resolved]
  - Incorrect drug administration duration [Recovered/Resolved]

NARRATIVE: CASE EVENT DATE: 20170714
